FAERS Safety Report 8354658-5 (Version None)
Quarter: 2012Q2

REPORT INFORMATION
  Report Type: 
  Country: None (occurrence: None)
  Receive Date: 20120511
  Receipt Date: 20120503
  Transmission Date: 20120825
  Serious: Yes (Other)
  Sender: FDA-Public Use
  Company Number: US-ASTRAZENECA-2010SE53488

PATIENT
  Age: 75 Year
  Sex: Male
  Weight: 108.9 kg

DRUGS (9)
  1. LOSARTAN POTASSIUM [Concomitant]
     Indication: CARDIAC DISORDER
     Route: 048
     Dates: start: 20020101
  2. SYMBICORT [Suspect]
     Indication: ASTHMA
     Dosage: 160/4.5 MCGS TWO INHALATIONS ONCE DAILY
     Route: 055
  3. SYMBICORT [Suspect]
     Dosage: 160/4.5 MCGS BID
     Route: 055
     Dates: start: 20100101
  4. SIMVASTATIN [Concomitant]
     Indication: BLOOD CHOLESTEROL
     Route: 048
     Dates: start: 20100101
  5. CARVEDILOL [Concomitant]
     Indication: CARDIAC DISORDER
     Route: 048
  6. PRILOSEC [Suspect]
     Indication: HYPERCHLORHYDRIA
     Route: 048
     Dates: start: 20000101
  7. GENERIC HEART MEDICATION [Concomitant]
     Indication: HYPERTENSION
     Dosage: DAILY
     Route: 048
  8. GENERIC HIGH CHOLESTEROL MEDICATION [Concomitant]
     Indication: BLOOD CHOLESTEROL INCREASED
     Dosage: DAILY
     Route: 048
  9. GENERIC HTN MEDICATION [Concomitant]
     Indication: HYPERTENSION
     Dosage: DAILY
     Route: 048

REACTIONS (5)
  - DYSPNOEA [None]
  - DRY MOUTH [None]
  - OFF LABEL USE [None]
  - INTENTIONAL DRUG MISUSE [None]
  - MYOCARDIAL INFARCTION [None]
